FAERS Safety Report 11008534 (Version 2)
Quarter: 2015Q2

REPORT INFORMATION
  Report Type: Report from Study
  Country: US (occurrence: None)
  Receive Date: 20150408
  Receipt Date: 20150422
  Transmission Date: 20150821
  Serious: Yes (Other)
  Sender: FDA-Public Use
  Company Number: 2015AP007761

PATIENT
  Age: 45 Year
  Sex: Female
  Weight: 41 kg

DRUGS (6)
  1. PRISTIQ (DESVENLAFAXINE SUCCINATE) [Concomitant]
     Active Substance: DESVENLAFAXINE SUCCINATE
  2. HUMULIN R (INSULIN HUMAN) [Concomitant]
  3. PROTONIX [Concomitant]
     Active Substance: PANTOPRAZOLE SODIUM
  4. LANTUS [Concomitant]
     Active Substance: INSULIN GLARGINE
  5. FERRIPROX [Suspect]
     Active Substance: DEFERIPRONE
     Indication: HAEMOCHROMATOSIS
     Route: 048
     Dates: start: 20150127
  6. FERRIPROX [Suspect]
     Active Substance: DEFERIPRONE
     Indication: THALASSAEMIA
     Route: 048
     Dates: start: 20150127

REACTIONS (1)
  - Palpitations [None]

NARRATIVE: CASE EVENT DATE: 20150304
